FAERS Safety Report 4604628-5 (Version None)
Quarter: 2005Q1

REPORT INFORMATION
  Report Type: 
  Country: None (occurrence: None)
  Receive Date: 20050310
  Receipt Date: 20050308
  Transmission Date: 20050727
  Serious: Yes (Hospitalization)
  Sender: FDA-Public Use
  Company Number: DE-MERCK-0503DEU00072

PATIENT
  Age: 78 Year
  Sex: Male

DRUGS (2)
  1. VIOXX [Suspect]
     Indication: ARTHRALGIA
     Route: 048
     Dates: start: 20000301
  2. VIOXX [Suspect]
     Route: 048
     Dates: start: 20000301

REACTIONS (2)
  - CARDIAC DISORDER [None]
  - CARDIOVASCULAR DISORDER [None]
